FAERS Safety Report 10232617 (Version 1)
Quarter: 2014Q2

REPORT INFORMATION
  Report Type: Spontaneous
  Country: US (occurrence: None)
  Receive Date: 20140611
  Receipt Date: 20140611
  Transmission Date: 20141212
  Serious: Yes (Life-Threatening, Hospitalization, Disabling, Other)
  Sender: FDA-Public Use
  Company Number: None

PATIENT
  Age: 30 Year
  Sex: Female
  Weight: 105 kg

DRUGS (1)
  1. TRAMADOL 50MG [Suspect]

REACTIONS (4)
  - Pain [None]
  - Shock [None]
  - Inhibitory drug interaction [None]
  - Drug ineffective [None]
